FAERS Safety Report 9881842 (Version 1)
Quarter: 2014Q1

REPORT INFORMATION
  Report Type: Spontaneous
  Country: US (occurrence: US)
  Receive Date: 20140207
  Receipt Date: 20140207
  Transmission Date: 20141002
  Serious: Yes (Other)
  Sender: FDA-Public Use
  Company Number: US-PFIZER INC-2014034513

PATIENT
  Age: 59 Year
  Sex: Male
  Weight: 104.3 kg

DRUGS (2)
  1. CHANTIX [Suspect]
     Indication: SMOKING CESSATION THERAPY
     Dosage: UNK
     Dates: end: 20140203
  2. KEPPRA [Interacting]
     Indication: EPILEPSY
     Dosage: 1000 MG, 1X/DAY

REACTIONS (2)
  - Drug interaction [Unknown]
  - Convulsion [Unknown]
